FAERS Safety Report 26111714 (Version 1)
Quarter: 2025Q4

REPORT INFORMATION
  Report Type: Report from Study
  Country: US (occurrence: US)
  Receive Date: 20251202
  Receipt Date: 20251202
  Transmission Date: 20260117
  Serious: Yes (Other)
  Sender: JAZZ
  Company Number: US-JAZZ PHARMACEUTICALS-2025-US-026679

PATIENT
  Age: 41 Year
  Sex: Female

DRUGS (16)
  1. XYWAV [Suspect]
     Active Substance: CALCIUM OXYBATE\MAGNESIUM OXYBATE\POTASSIUM OXYBATE\SODIUM OXYBATE
     Indication: Hypersomnia
     Dosage: TAKE 3.5 GRAMS OF XYWAV AT BEDTIME, 3.25 GRAMS 2.5 HOURS LATER, AND 2.25 GRAMS 2.5 HOURS LATER.
  2. XYWAV [Suspect]
     Active Substance: CALCIUM OXYBATE\MAGNESIUM OXYBATE\POTASSIUM OXYBATE\SODIUM OXYBATE
     Dosage: 3.5 GRAM,3.5GRAM 2.25GRAM
  3. WELLBUTRIN [Concomitant]
     Active Substance: BUPROPION HYDROCHLORIDE
     Dosage: UNK
  4. DUPIXENT [Concomitant]
     Active Substance: DUPILUMAB
     Dosage: 300 MG/2 ML PEN
  5. ALLEGRA ALLERGY [Concomitant]
     Active Substance: FEXOFENADINE HYDROCHLORIDE
     Dosage: UNK
  6. ALPRAZOLAM ZYDUS [Concomitant]
  7. BETAMETHASONE [Concomitant]
     Active Substance: BETAMETHASONE
  8. BUPROPION HYDROCHLORIDE [Concomitant]
     Active Substance: BUPROPION HYDROCHLORIDE
  9. DIAZEPAM WYNN [Concomitant]
  10. HALOBETASOL PROPIONATE [Concomitant]
     Active Substance: HALOBETASOL PROPIONATE
  11. IBUPROFEN [Concomitant]
     Active Substance: IBUPROFEN
  12. MISOPRESTOL [Concomitant]
  13. TACROLIMUS [Concomitant]
     Active Substance: TACROLIMUS
  14. TRANEXAMIC ACID [Concomitant]
     Active Substance: TRANEXAMIC ACID
  15. TRETINOIN [Concomitant]
     Active Substance: TRETINOIN
  16. TRINTELLIX [Concomitant]
     Active Substance: VORTIOXETINE HYDROBROMIDE
     Dosage: 10 MG,20MG

REACTIONS (4)
  - Surgery [Unknown]
  - Breast hyperplasia [Unknown]
  - Bruxism [Unknown]
  - Off label use [Unknown]

NARRATIVE: CASE EVENT DATE: 20250601
